FAERS Safety Report 12440165 (Version 1)
Quarter: 2016Q2

REPORT INFORMATION
  Report Type: Spontaneous
  Country: US (occurrence: US)
  Receive Date: 20160606
  Receipt Date: 20160606
  Transmission Date: 20160815
  Serious: No
  Sender: FDA-Public Use
  Company Number: US-AMGEN-USASP2015115868

PATIENT
  Age: 53 Year
  Sex: Female

DRUGS (1)
  1. EPOGEN [Suspect]
     Active Substance: ERYTHROPOIETIN
     Indication: END STAGE RENAL DISEASE
     Dosage: 20,000 UNITS/ML, UNK
     Route: 065

REACTIONS (2)
  - Incorrect product storage [Unknown]
  - Wrong technique in product usage process [Unknown]
